FAERS Safety Report 18736323 (Version 1)
Quarter: 2021Q1

REPORT INFORMATION
  Report Type: Spontaneous
  Country: US (occurrence: US)
  Receive Date: 20210113
  Receipt Date: 20210113
  Transmission Date: 20210419
  Serious: No
  Sender: FDA-Public Use
  Company Number: US-PFIZER INC-2014012420

PATIENT
  Age: 78 Year
  Sex: Male

DRUGS (43)
  1. ATROPINE [ATROPINE SULFATE] [Concomitant]
     Dosage: 1 DROP, 2X/DAY, (1% ? (MON, WED, FRI) 1 DROP IN RIGHT EYE TWICE A DAY)
     Dates: start: 2012
  2. FLUTICASONE. [Concomitant]
     Active Substance: FLUTICASONE
     Dosage: UNK, AS NEEDED
     Dates: start: 2012
  3. FLUTICASONE. [Concomitant]
     Active Substance: FLUTICASONE
     Dosage: UNK, AS NEEDED
     Dates: start: 2015
  4. PACERONE [Concomitant]
     Active Substance: AMIODARONE HYDROCHLORIDE
     Dosage: 100 MG, DAILY
     Dates: start: 2015
  5. TRUSOPT [Concomitant]
     Active Substance: DORZOLAMIDE HYDROCHLORIDE
     Dosage: 1 DROP, 2X/DAY (2% ? 1 DROP IN RIGHT EYE TWICE DAILY)
     Dates: start: 2015
  6. WARFARIN [Concomitant]
     Active Substance: WARFARIN
     Dosage: UNK ((2.5 MG SUN, TUES, THURS, SAT)
     Dates: start: 2015
  7. ZADITOR [KETOTIFEN] [Concomitant]
     Dosage: 2 DROP, 2X/DAY (0.1% ? 1 DROP IN BOTH EYES TWICE DAILY)
     Dates: start: 2015
  8. LYRICA [Suspect]
     Active Substance: PREGABALIN
     Dosage: 150 MG, 2X/DAY
     Dates: start: 2012
  9. ATROPINE [ATROPINE SULFATE] [Concomitant]
     Dosage: 1 DROP, 2X/DAY (1% ? (MON, WED, FRI) 1 DROP IN RIGHT EYE TWICE A DAY)
     Dates: start: 2015
  10. LAMISIL [Concomitant]
     Active Substance: TERBINAFINE HYDROCHLORIDE
     Dosage: UNK, CYCLIC (360 MH) (1 TABLET DAILY FOR 7 DAYS AND THEN REPEAT IN 3 MONTHS)
     Dates: start: 2015
  11. LASIX [Concomitant]
     Active Substance: FUROSEMIDE
     Dosage: 40 MG, DAILY
     Dates: start: 2012
  12. LISINOPRIL. [Concomitant]
     Active Substance: LISINOPRIL
     Dosage: 20 MG, DAILY
     Dates: start: 2012
  13. TEMAZEPAM. [Concomitant]
     Active Substance: TEMAZEPAM
     Dosage: 15 MG, 1X/DAY (1 CAPSULE AT BEDTIME)
     Dates: start: 2012
  14. TRAMADOL. [Concomitant]
     Active Substance: TRAMADOL
     Dosage: 50 MG, AS NEEDED (1 TABLET BY MOUTH EVERY 4 HRS PRN (AS NEEDED))
     Route: 048
     Dates: start: 2012
  15. ZADITOR [KETOTIFEN] [Concomitant]
     Dosage: 2 DROP, 2X/DAY (0.1% ? 1 DROP IN BOTH EYES TWICE DAILY)
     Dates: start: 2012
  16. FELODIPINE. [Concomitant]
     Active Substance: FELODIPINE
     Dosage: 5 MG, DAILY
     Dates: start: 2012
  17. LEVOTHYROXINE [LEVOTHYROXINE SODIUM] [Concomitant]
     Active Substance: LEVOTHYROXINE SODIUM
     Dosage: 88 MG, DAILY
     Dates: start: 2015
  18. PACERONE [Concomitant]
     Active Substance: AMIODARONE HYDROCHLORIDE
     Dosage: 100 MG, DAILY
     Dates: start: 2012
  19. POTASSIUM K 20 [Concomitant]
     Dosage: 20 MG, DAILY
     Dates: start: 2012
  20. LYRICA [Suspect]
     Active Substance: PREGABALIN
     Dosage: 150 MG, 2X/DAY
     Dates: start: 2015
  21. BRIMODINE [Concomitant]
     Dosage: 2 DROP, 2X/DAY (0.2% 1 DROP IN BOTH EYES TWICE DAILY )
     Dates: start: 2015
  22. CARVEDIOL [Concomitant]
     Active Substance: CARVEDILOL
     Dosage: 25 MG, 2X/DAY
     Dates: start: 2012
  23. LASIX [Concomitant]
     Active Substance: FUROSEMIDE
     Dosage: 40 MG, DAILY
     Dates: start: 2015
  24. POTASSIUM K 20 [Concomitant]
     Dosage: 20 MG, DAILY
     Dates: start: 2015
  25. TEMAZEPAM. [Concomitant]
     Active Substance: TEMAZEPAM
     Dosage: 15 MG, 1X/DAY (1 CAPSULE AT BEDTIME)
     Dates: start: 2015
  26. TRUSOPT [Concomitant]
     Active Substance: DORZOLAMIDE HYDROCHLORIDE
     Dosage: 1 DROP, 2X/DAY (2% ? 1 DROP IN RIGHT EYE TWICE DAILY)
     Dates: start: 2012
  27. FELODIPINE. [Concomitant]
     Active Substance: FELODIPINE
     Dosage: 5 MG, DAILY
     Dates: start: 2015
  28. GLIPIZIDE. [Concomitant]
     Active Substance: GLIPIZIDE
     Dosage: 5 MG, 2X/DAY
     Dates: start: 2012
  29. PROPAFENONE [PROPAFENONE HYDROCHLORIDE] [Concomitant]
     Active Substance: PROPAFENONE
     Dosage: 150 MG, 2X/DAY
     Dates: start: 2015
  30. TRAMADOL. [Concomitant]
     Active Substance: TRAMADOL
     Dosage: 50 MG, AS NEEDED (1 TABLET BY MOUTH EVERY 4 HRS PRN (AS NEEDED))
     Route: 048
     Dates: start: 2015
  31. WARFARIN [Concomitant]
     Active Substance: WARFARIN
     Dosage: UNK (5 MG? (5 MG MON, WED, FRI)
     Dates: start: 2012
  32. XALATAN [Suspect]
     Active Substance: LATANOPROST
     Dosage: 2 DROP, 1X/DAY (1 DROP IN BOTH EYES AT NIGHT)
     Dates: start: 2015
  33. CARVEDIOL [Concomitant]
     Active Substance: CARVEDILOL
     Dosage: 25 MG, 2X/DAY
     Dates: start: 2015
  34. LISINOPRIL. [Concomitant]
     Active Substance: LISINOPRIL
     Dosage: 20 MG, 2X/DAY
     Dates: start: 2015
  35. SIMVASTATIN. [Concomitant]
     Active Substance: SIMVASTATIN
     Dosage: 20 MG, DAILY
     Dates: start: 2012
  36. XALATAN [Suspect]
     Active Substance: LATANOPROST
     Dosage: 2 DROP, 1X/DAY (1 DROP IN BOTH EYES AT NIGHT)
     Dates: start: 2012
  37. LEVOTHYROXINE [LEVOTHYROXINE SODIUM] [Concomitant]
     Active Substance: LEVOTHYROXINE SODIUM
     Dosage: 50 MG, DAILY
     Dates: start: 2012
  38. PROPAFENONE [PROPAFENONE HYDROCHLORIDE] [Concomitant]
     Active Substance: PROPAFENONE
     Dosage: 150 MG, 2X/DAY
     Dates: start: 2012
  39. WARFARIN [Concomitant]
     Active Substance: WARFARIN
     Dosage: UNK (5 MG? (5 MG MON, WED, FRI)
     Dates: start: 2015
  40. BRIMODINE [Concomitant]
     Dosage: 2 DROP, 2X/DAY ((0.2% 1 DROP IN BOTH EYES TWICE DAILY )
     Dates: start: 2012
  41. GLIPIZIDE. [Concomitant]
     Active Substance: GLIPIZIDE
     Dosage: 5 MG, 2X/DAY
     Dates: start: 2015
  42. SIMVASTATIN. [Concomitant]
     Active Substance: SIMVASTATIN
     Dosage: 20 MG, DAILY
     Dates: start: 2015
  43. WARFARIN [Concomitant]
     Active Substance: WARFARIN
     Dosage: UNK ((2.5 MG SUN, TUES, THURS, SAT)
     Dates: start: 2012

REACTIONS (1)
  - Dysgraphia [Unknown]
